FAERS Safety Report 13980224 (Version 5)
Quarter: 2018Q4

REPORT INFORMATION
  Report Type: Spontaneous
  Country: FR (occurrence: FR)
  Receive Date: 20170917
  Receipt Date: 20181023
  Transmission Date: 20190204
  Serious: Yes (Other)
  Sender: FDA-Public Use
  Company Number: FR-MERCK KGAA-2026615

PATIENT
  Age: 41 Year
  Sex: Female
  Weight: 90 kg

DRUGS (3)
  1. NOVOTHYROX [Suspect]
     Active Substance: LEVOTHYROXINE SODIUM
     Dates: start: 201710
  2. EUTHYROX [Suspect]
     Active Substance: LEVOTHYROXINE SODIUM
     Indication: HYPOTHYROIDISM
     Route: 048
     Dates: start: 201704, end: 2017
  3. NOVOTHYROX [Suspect]
     Active Substance: LEVOTHYROXINE SODIUM
     Route: 048
     Dates: start: 201710

REACTIONS (12)
  - Weight increased [Recovered/Resolved]
  - Blood thyroid stimulating hormone increased [Recovered/Resolved]
  - Hot flush [Recovered/Resolved]
  - Fatigue [Recovering/Resolving]
  - Palpitations [Recovered/Resolved]
  - Headache [Recovered/Resolved]
  - Disturbance in attention [None]
  - Impatience [None]
  - Mood altered [None]
  - Insomnia [None]
  - Alopecia [None]
  - Sleep disorder [Recovered/Resolved]

NARRATIVE: CASE EVENT DATE: 201704
